FAERS Safety Report 26025699 (Version 1)
Quarter: 2025Q4

REPORT INFORMATION
  Report Type: Spontaneous
  Country: US (occurrence: None)
  Receive Date: 20251110
  Receipt Date: 20251110
  Transmission Date: 20260117
  Serious: Yes (Hospitalization)
  Sender: FDA-CTU
  Company Number: None

PATIENT
  Sex: Female

DRUGS (1)
  1. VYALEV [Suspect]
     Active Substance: FOSCARBIDOPA\FOSLEVODOPA
     Indication: Parkinson^s disease
     Dosage: 1 DF DOSAGE FORM DAILY SUBCUTANEOUS
     Route: 058

REACTIONS (3)
  - Injection site irritation [None]
  - Injection site infection [None]
  - Injection site cellulitis [None]
